FAERS Safety Report 7277860-2 (Version None)
Quarter: 2011Q1

REPORT INFORMATION
  Report Type: 
  Country: None (occurrence: None)
  Receive Date: 20110202
  Receipt Date: 20110202
  Transmission Date: 20110831
  Serious: Yes (Disabling, Other)
  Sender: FDA-Public Use
  Company Number: None

PATIENT
  Sex: Female
  Weight: 69.8539 kg

DRUGS (1)
  1. TRIAD ALCOHOL PREP PAD ISOPROPYL ALCOHOL 70% V/V TRAID GROUP [Suspect]
     Indication: THERAPEUTIC SKIN CARE TOPICAL
     Dosage: ALCOHOL PREP PAD DAILY TOP
     Route: 061
     Dates: start: 20050101

REACTIONS (4)
  - PRODUCT CONTAMINATION MICROBIAL [None]
  - PAIN [None]
  - PRODUCT QUALITY ISSUE [None]
  - INJECTION SITE SWELLING [None]
